FAERS Safety Report 5557768-0 (Version None)
Quarter: 2007Q4

REPORT INFORMATION
  Report Type: 
  Country: None (occurrence: None)
  Receive Date: 20071214
  Receipt Date: 20071130
  Transmission Date: 20080405
  Serious: Yes (Hospitalization)
  Sender: FDA-Public Use
  Company Number: CA-GENENTECH-250086

PATIENT
  Sex: Female
  Weight: 137.8 kg

DRUGS (11)
  1. BEVACIZUMAB [Suspect]
     Indication: COLON CANCER
     Dosage: 660 MG, Q3W
     Route: 042
     Dates: start: 20070423, end: 20071129
  2. OXALIPLATIN [Suspect]
     Indication: COLON CANCER
     Dosage: 140 MG, Q2W
     Route: 042
     Dates: start: 20070423, end: 20071129
  3. LEUCOVORIN CALCIUM [Suspect]
     Indication: COLON CANCER
     Dosage: 660 MG, Q2W
     Route: 042
     Dates: start: 20070423, end: 20071129
  4. FLUOROURACIL [Suspect]
     Indication: COLON CANCER
     Dosage: 660 MG, Q2W
     Route: 042
     Dates: start: 20070423, end: 20071129
  5. NEUPOGEN [Concomitant]
     Indication: DRUG USE FOR UNKNOWN INDICATION
     Dosage: UNK, UNK
     Dates: end: 20070818
  6. MODULON [Concomitant]
     Indication: DRUG USE FOR UNKNOWN INDICATION
     Dates: start: 20040615
  7. IRON SUPPLEMENT [Concomitant]
     Indication: DRUG USE FOR UNKNOWN INDICATION
     Dates: start: 20070315
  8. PANTOPRAZOLE SODIUM [Concomitant]
     Indication: DRUG USE FOR UNKNOWN INDICATION
  9. DOMPERIDONE [Concomitant]
     Indication: DRUG USE FOR UNKNOWN INDICATION
  10. NYSTATIN [Concomitant]
     Indication: DRUG USE FOR UNKNOWN INDICATION
  11. POTASSIUM CHLORIDE [Concomitant]
     Indication: DRUG USE FOR UNKNOWN INDICATION

REACTIONS (4)
  - ABDOMINAL PAIN [None]
  - FEBRILE NEUTROPENIA [None]
  - OESOPHAGEAL CANDIDIASIS [None]
  - VOMITING [None]
